FAERS Safety Report 13728126 (Version 1)
Quarter: 2017Q3

REPORT INFORMATION
  Report Type: Report from Study
  Country: IT (occurrence: IT)
  Receive Date: 20170707
  Receipt Date: 20170707
  Transmission Date: 20171127
  Serious: Yes (Hospitalization)
  Sender: FDA-Public Use
  Company Number: IT-TEVA-783622ROM

PATIENT
  Age: 45 Year
  Sex: Female

DRUGS (3)
  1. DICLOFENAC [Interacting]
     Active Substance: DICLOFENAC
     Indication: BACK PAIN
     Dosage: 75MG
     Route: 048
  2. IBUPROFEN. [Suspect]
     Active Substance: IBUPROFEN
     Indication: HEADACHE
     Dosage: 400MG
     Route: 048
  3. ACETYLSALICYLIC ACID [Interacting]
     Active Substance: ASPIRIN
     Dosage: 100MG
     Route: 065

REACTIONS (5)
  - Melaena [Recovering/Resolving]
  - Contraindicated product administered [Recovering/Resolving]
  - Small intestinal haemorrhage [Recovering/Resolving]
  - Drug interaction [Recovering/Resolving]
  - Duodenal ulcer [Recovering/Resolving]
